FAERS Safety Report 7261409-4 (Version None)
Quarter: 2011Q1

REPORT INFORMATION
  Report Type: 
  Country: None (occurrence: None)
  Receive Date: 20110124
  Receipt Date: 20110124
  Transmission Date: 20110831
  Serious: Yes (Other)
  Sender: FDA-Public Use
  Company Number: None

PATIENT
  Age: 71 Year
  Sex: Female

DRUGS (1)
  1. BOCA/UTLIET ALCOHOL SWABS TRIAD [Suspect]
     Indication: TYPE 1 DIABETES MELLITUS
     Dosage: DAILY

REACTIONS (5)
  - VOMITING [None]
  - PAIN [None]
  - PAIN IN EXTREMITY [None]
  - PRODUCT QUALITY ISSUE [None]
  - OEDEMA PERIPHERAL [None]
